FAERS Safety Report 26054809 (Version 1)
Quarter: 2025Q4

REPORT INFORMATION
  Report Type: Spontaneous
  Country: US (occurrence: None)
  Receive Date: 20251117
  Receipt Date: 20251117
  Transmission Date: 20260117
  Serious: Yes (Death)
  Sender: FDA-CTU
  Company Number: None

PATIENT
  Age: 64 Year
  Sex: Male
  Weight: 86.2 kg

DRUGS (12)
  1. TACROLIMUS [Suspect]
     Active Substance: TACROLIMUS
     Indication: Liver transplant
     Dosage: FREQUENCY : TWICE A DAY;?
     Route: 048
     Dates: start: 20230706, end: 20251107
  2. MYCOPHENOLIC ACID [Suspect]
     Active Substance: MYCOPHENOLIC ACID
     Indication: Liver transplant
     Dosage: FREQUENCY : TWICE A DAY;?
     Dates: start: 20230706, end: 20251107
  3. Lantus Solostar Pen 3ml [Concomitant]
  4. Novolog Flexpen 3ml [Concomitant]
  5. Bactrim DS (800-160mg) [Concomitant]
  6. FLUCONAZOLE [Concomitant]
     Active Substance: FLUCONAZOLE
  7. MAGNESIUM OXIDE 400MG [Concomitant]
     Active Substance: MAGNESIUM OXIDE
  8. Nifedipine 30mg ER [Concomitant]
  9. PREDNISONE [Concomitant]
     Active Substance: PREDNISONE
  10. Robaxin 500mg [Concomitant]
  11. TRAMADOL [Concomitant]
     Active Substance: TRAMADOL
  12. Ursodiol 300mg [Concomitant]

REACTIONS (2)
  - Myocardial infarction [None]
  - Renal failure [None]

NARRATIVE: CASE EVENT DATE: 20251107
